FAERS Safety Report 4597216-0 (Version None)
Quarter: 2005Q1

REPORT INFORMATION
  Report Type: 
  Country: None (occurrence: None)
  Receive Date: 20050303
  Receipt Date: 20041229
  Transmission Date: 20050727
  Serious: Yes (Other)
  Sender: FDA-Public Use
  Company Number: BE-JNJFOC-20041207628

PATIENT
  Sex: Female

DRUGS (14)
  1. INFLIXIMAB [Suspect]
     Route: 042
  2. INFLIXIMAB [Suspect]
     Route: 042
  3. INFLIXIMAB [Suspect]
     Indication: ENDOMETRIOSIS
     Route: 042
  4. PLACEBO [Suspect]
     Route: 042
  5. PLACEBO [Suspect]
     Route: 042
  6. PLACEBO [Suspect]
     Indication: ENDOMETRIOSIS
     Route: 042
  7. ASPIRIN [Concomitant]
     Route: 049
  8. ASPIRIN [Concomitant]
     Route: 049
  9. ASPIRIN [Concomitant]
     Route: 049
  10. ASPIRIN [Concomitant]
     Indication: ABDOMINAL PAIN
     Route: 049
  11. GENERAL ANAESTHETIC [Concomitant]
     Indication: SURGERY
     Route: 042
  12. UBRETID [Concomitant]
     Indication: URINARY TRACT DISORDER
     Route: 049
  13. UNSPECIFIED ANTIBIOTICS [Concomitant]
     Route: 049
  14. UNSPECIFIED ANTIBIOTICS [Concomitant]
     Indication: CYSTITIS
     Route: 049

REACTIONS (5)
  - ACUTE LEUKAEMIA [None]
  - CYSTITIS [None]
  - INFLUENZA [None]
  - PHARYNGOLARYNGEAL PAIN [None]
  - URINARY TRACT DISORDER [None]
